FAERS Safety Report 17268513 (Version 3)
Quarter: 2020Q1

REPORT INFORMATION
  Report Type: Report from Study
  Country: IE (occurrence: IE)
  Receive Date: 20200114
  Receipt Date: 20200302
  Transmission Date: 20200409
  Serious: Yes (Other)
  Sender: FDA-Public Use
  Company Number: IE-JNJFOC-20200116726

PATIENT
  Age: 78 Year
  Sex: Female

DRUGS (9)
  1. ASPRIN [Concomitant]
     Active Substance: ASPIRIN
     Route: 050
  2. DOXAZOSIN [Concomitant]
     Active Substance: DOXAZOSIN MESYLATE
     Route: 050
  3. DELTACORTRIL [Concomitant]
     Active Substance: PREDNISOLONE
     Route: 050
  4. BISOPROLOL [Concomitant]
     Active Substance: BISOPROLOL
     Route: 050
  5. STELARA [Suspect]
     Active Substance: USTEKINUMAB
     Route: 058
     Dates: start: 20191205
  6. STELARA [Suspect]
     Active Substance: USTEKINUMAB
     Route: 058
     Dates: start: 20191003
  7. CALCHICHEW [Concomitant]
     Route: 050
  8. STELARA [Suspect]
     Active Substance: USTEKINUMAB
     Indication: PRODUCT USED FOR UNKNOWN INDICATION
     Route: 058
     Dates: start: 20190724
  9. PANTOPRAZOLE [Concomitant]
     Active Substance: PANTOPRAZOLE
     Route: 050

REACTIONS (2)
  - Product dose omission [Unknown]
  - Urinary tract infection [Not Recovered/Not Resolved]

NARRATIVE: CASE EVENT DATE: 201912
